FAERS Safety Report 4682374-X (Version None)
Quarter: 2005Q2

REPORT INFORMATION
  Report Type: 
  Country: None (occurrence: None)
  Receive Date: 20050601
  Receipt Date: 20050519
  Transmission Date: 20051028
  Serious: Yes (Life-Threatening)
  Sender: FDA-Public Use
  Company Number: SAGL-ZLB/05/47/JPN

PATIENT
  Age: 81 Year
  Sex: Male
  Weight: 50.6 kg

DRUGS (3)
  1. SANGLOPOR (IMMUNOGLOBULIN HUMAN NORMAL) [Suspect]
     Indication: IDIOPATHIC THROMBOCYTOPENIC PURPURA
     Dosage: 20 G ONCE, I.V.
     Route: 042
     Dates: start: 20050507, end: 20050507
  2. DECADRON PHOSPHATE [Concomitant]
  3. PREDNISOLONE [Concomitant]

REACTIONS (11)
  - ANGINA PECTORIS [None]
  - BLOOD PRESSURE INCREASED [None]
  - BRADYCARDIA [None]
  - CHEST DISCOMFORT [None]
  - CHEST PAIN [None]
  - DRUG HYPERSENSITIVITY [None]
  - DYSPNOEA [None]
  - INFUSION RELATED REACTION [None]
  - LOSS OF CONSCIOUSNESS [None]
  - RESPIRATORY ARREST [None]
  - WHEEZING [None]
